FAERS Safety Report 17817977 (Version 2)
Quarter: 2020Q2

REPORT INFORMATION
  Report Type: Spontaneous
  Country: SA (occurrence: SA)
  Receive Date: 20200522
  Receipt Date: 20200527
  Transmission Date: 20200714
  Serious: Yes (Other)
  Sender: FDA-Public Use
  Company Number: SA-ABBVIE-20K-259-3414809-00

PATIENT
  Sex: Male

DRUGS (15)
  1. CARFILZOMIB [Suspect]
     Active Substance: CARFILZOMIB
     Route: 065
     Dates: end: 201909
  2. CARFILZOMIB [Suspect]
     Active Substance: CARFILZOMIB
     Dosage: DAY 8
     Route: 065
     Dates: start: 20190514, end: 20190514
  3. DEXAMETHASONE. [Suspect]
     Active Substance: DEXAMETHASONE
     Route: 065
     Dates: start: 20190306, end: 201909
  4. VENETOCLAX. [Suspect]
     Active Substance: VENETOCLAX
     Indication: PLASMA CELL MYELOMA
     Route: 048
     Dates: start: 20190306, end: 2019
  5. DEXAMETHASONE. [Suspect]
     Active Substance: DEXAMETHASONE
     Route: 065
     Dates: start: 20170305, end: 201708
  6. DEXAMETHASONE. [Suspect]
     Active Substance: DEXAMETHASONE
     Indication: PLASMA CELL MYELOMA
     Route: 065
     Dates: start: 20130805, end: 201312
  7. VENETOCLAX. [Suspect]
     Active Substance: VENETOCLAX
     Dosage: ESCALATED TO 200 MG PER DAY OVER A PERIOD OF 2 MONTHS
     Route: 048
     Dates: end: 201909
  8. DEXAMETHASONE. [Suspect]
     Active Substance: DEXAMETHASONE
     Route: 065
     Dates: start: 20140602, end: 201407
  9. DEXAMETHASONE. [Suspect]
     Active Substance: DEXAMETHASONE
     Route: 065
     Dates: start: 20170906, end: 201802
  10. CARFILZOMIB [Suspect]
     Active Substance: CARFILZOMIB
     Dosage: DAY 1
     Route: 065
     Dates: start: 20190506, end: 20190506
  11. CARFILZOMIB [Suspect]
     Active Substance: CARFILZOMIB
     Dosage: DAY 22
     Route: 065
     Dates: start: 20190528, end: 20190528
  12. DEXAMETHASONE. [Suspect]
     Active Substance: DEXAMETHASONE
     Route: 065
     Dates: start: 20160803, end: 201610
  13. CARFILZOMIB [Suspect]
     Active Substance: CARFILZOMIB
     Route: 065
     Dates: start: 20191002, end: 20191002
  14. DEXAMETHASONE. [Suspect]
     Active Substance: DEXAMETHASONE
     Route: 065
     Dates: start: 20160303, end: 201605
  15. CARFILZOMIB [Suspect]
     Active Substance: CARFILZOMIB
     Indication: PLASMA CELL MYELOMA
     Route: 065
     Dates: start: 20160303, end: 201605

REACTIONS (2)
  - Plasma cell myeloma [Unknown]
  - Bone marrow failure [Unknown]

NARRATIVE: CASE EVENT DATE: 2019
